FAERS Safety Report 7505186-8 (Version None)
Quarter: 2011Q2

REPORT INFORMATION
  Report Type: 
  Country: None (occurrence: None)
  Receive Date: 20110526
  Receipt Date: 20110518
  Transmission Date: 20111010
  Serious: Yes (Hospitalization)
  Sender: FDA-Public Use
  Company Number: US-ABBOTT-11P-163-0707927-00

PATIENT
  Sex: Male
  Weight: 71.732 kg

DRUGS (9)
  1. NIASPAN [Suspect]
     Indication: BLOOD CHOLESTEROL INCREASED
     Dates: end: 20110301
  2. DIOVAN [Concomitant]
     Indication: HYPERTENSION
  3. PLAVIX [Concomitant]
     Indication: ANTICOAGULANT THERAPY
  4. NIASPAN [Suspect]
     Dates: start: 20110501
  5. ASPIRIN [Concomitant]
     Indication: CARDIAC DISORDER
  6. VITAMINS [Concomitant]
     Indication: VITAMIN SUPPLEMENTATION
  7. VICODIN [Concomitant]
     Indication: BACK PAIN
  8. ZOCOR [Concomitant]
     Indication: BLOOD CHOLESTEROL INCREASED
  9. NEXIUM [Concomitant]
     Indication: GASTROOESOPHAGEAL REFLUX DISEASE

REACTIONS (5)
  - BLOOD GLUCOSE INCREASED [None]
  - FLUSHING [None]
  - PAIN [None]
  - DIZZINESS [None]
  - POLLAKIURIA [None]
